FAERS Safety Report 7222690-0 (Version None)
Quarter: 2011Q1

REPORT INFORMATION
  Report Type: 
  Country: None (occurrence: None)
  Receive Date: 20110112
  Receipt Date: 20100916
  Transmission Date: 20110831
  Serious: Yes (Hospitalization, Other)
  Sender: FDA-Public Use
  Company Number: US-AMGEN-QUU422515

PATIENT

DRUGS (17)
  1. ARANESP [Suspect]
     Indication: RENAL FAILURE CHRONIC
     Dosage: 300 A?G, QWK
     Route: 042
     Dates: start: 20100101, end: 20100701
  2. DIPHENHYDRAMINE HYDROCHLORIDE [Concomitant]
     Dosage: UNK UNK, PRN
  3. METOPROLOL TARTRATE [Concomitant]
     Dosage: 25 MG, BID
     Route: 048
  4. LOSARTAN POTASSIUM [Concomitant]
  5. MINOXIDIL [Concomitant]
  6. GABAPENTIN [Concomitant]
     Dosage: 500 MG, TID
     Route: 048
  7. OXYCODONE [Concomitant]
     Dosage: UNK UNK, PRN
     Route: 048
  8. EPOGEN [Suspect]
     Indication: RENAL FAILURE CHRONIC
     Dosage: UNK UNK, UNK
     Route: 058
     Dates: start: 20070101, end: 20100101
  9. LIDOCAINE HYDROCHLORIDE IN PLASTIC CONTAINER [Concomitant]
     Dosage: 5 %, PRN
  10. ONDANSETRON HYDROCHLORIDE [Concomitant]
     Dosage: 8 MG, Q6H
     Route: 048
  11. CALCITRIOL [Concomitant]
     Dosage: .5 A?G, 3 TIMES/WK
     Route: 048
  12. OSELTAMIVIR [Concomitant]
  13. PANTOPRAZOLE SODIUM [Concomitant]
     Dosage: 40 MG, QD
     Route: 048
  14. CLONAZEPAM [Concomitant]
     Dosage: .5 MG, QD
     Route: 048
  15. HEPARIN [Concomitant]
     Dosage: 3500 IU/KG, UNK
     Route: 042
  16. NIFEDIPINE [Concomitant]
     Dosage: 60 MG, BID
     Route: 048
  17. CLONIDINE [Concomitant]
     Dosage: .1 MG, PRN
     Route: 048

REACTIONS (5)
  - BONE MARROW MYELOGRAM ABNORMAL [None]
  - APLASIA PURE RED CELL [None]
  - ANTI-ERYTHROPOIETIN ANTIBODY POSITIVE [None]
  - ANAEMIA [None]
  - THERAPEUTIC RESPONSE DECREASED [None]
